FAERS Safety Report 8382809-5 (Version None)
Quarter: 2012Q2

REPORT INFORMATION
  Report Type: 
  Country: None (occurrence: None)
  Receive Date: 20120524
  Receipt Date: 20120510
  Transmission Date: 20120825
  Serious: No
  Sender: FDA-Public Use
  Company Number: SE-JNJFOC-20120511675

PATIENT
  Sex: Female

DRUGS (2)
  1. UNKNOWN MEDICATION [Concomitant]
     Route: 065
  2. REMICADE [Suspect]
     Indication: RHEUMATOID ARTHRITIS
     Dosage: AS NEEDED
     Route: 042
     Dates: start: 20100925

REACTIONS (1)
  - SYSTEMIC LUPUS ERYTHEMATOSUS [None]
